FAERS Safety Report 9719646 (Version 1)
Quarter: 2013Q4

REPORT INFORMATION
  Report Type: Report from Study
  Country: US (occurrence: US)
  Receive Date: 20131128
  Receipt Date: 20131128
  Transmission Date: 20140711
  Serious: Yes (Death)
  Sender: FDA-Public Use
  Company Number: US-ROCHE-1306641

PATIENT
  Age: 48 Year
  Sex: Male

DRUGS (3)
  1. AVASTIN [Suspect]
     Indication: LUNG NEOPLASM MALIGNANT
     Route: 065
  2. CARBOPLATIN [Concomitant]
     Indication: SMALL CELL LUNG CANCER
  3. ALIMTA [Concomitant]
     Indication: SMALL CELL LUNG CANCER

REACTIONS (2)
  - Death [Fatal]
  - Off label use [Unknown]
